FAERS Safety Report 23396652 (Version 2)
Quarter: 2024Q1

REPORT INFORMATION
  Report Type: Spontaneous
  Country: HU (occurrence: HU)
  Receive Date: 20240112
  Receipt Date: 20240213
  Transmission Date: 20240409
  Serious: Yes (Other)
  Sender: FDA-Public Use
  Company Number: HU-CELLTRION HEALTHCARE HUNGARY KFT-2023HU018620

PATIENT
  Age: 78 Year
  Sex: Female

DRUGS (2)
  1. ADALIMUMAB [Suspect]
     Active Substance: ADALIMUMAB\ISOPROPYL ALCOHOL
     Dosage: LATER SHE STARTED ADALIMUMAB TREATMENT, WHICH WAS DISCONTINUED AFTER 1 YEAR DUE TO RECTAL
     Route: 058
  2. ADALIMUMAB [Suspect]
     Active Substance: ADALIMUMAB\ISOPROPYL ALCOHOL
     Indication: Psoriatic arthropathy
     Dosage: RESTARTED UNDER CLOSE GASTROENTEROLOGICAL AND ONCOLOGICAL CONTROL
     Route: 058

REACTIONS (2)
  - Rectal adenocarcinoma [Unknown]
  - Loss of therapeutic response [Unknown]
